FAERS Safety Report 25610713 (Version 1)
Quarter: 2025Q3

REPORT INFORMATION
  Report Type: Spontaneous
  Country: US (occurrence: US)
  Receive Date: 20250728
  Receipt Date: 20250728
  Transmission Date: 20251020
  Serious: No
  Sender: SANOFI AVENTIS
  Company Number: US-SANOFI-02592580

PATIENT
  Sex: Female

DRUGS (1)
  1. LANTUS SOLOSTAR [Suspect]
     Active Substance: INSULIN GLARGINE

REACTIONS (7)
  - Expired product administered [Unknown]
  - Vision blurred [Unknown]
  - Dizziness [Unknown]
  - Blood glucose decreased [Unknown]
  - Sleep disorder [Unknown]
  - Feeling abnormal [Unknown]
  - Impaired driving ability [Unknown]

NARRATIVE: CASE EVENT DATE: 20250701
